FAERS Safety Report 23674959 (Version 1)
Quarter: 2024Q1

REPORT INFORMATION
  Report Type: Spontaneous
  Country: CH (occurrence: None)
  Receive Date: 20240326
  Receipt Date: 20240326
  Transmission Date: 20240410
  Serious: Yes (Other)
  Sender: FDA-Public Use
  Company Number: 2024A072500

PATIENT
  Sex: Female

DRUGS (10)
  1. SYMBICORT [Suspect]
     Active Substance: BUDESONIDE\FORMOTEROL FUMARATE DIHYDRATE
     Dosage: DOSE AND FREQUENCY UNKNOWN UNKNOWN
     Route: 055
  2. ROFLUMILAST [Suspect]
     Active Substance: ROFLUMILAST
     Route: 048
  3. SURMONTIL [Concomitant]
     Active Substance: TRIMIPRAMINE MALEATE
  4. QUETIAPINE FUMARATE [Concomitant]
     Active Substance: QUETIAPINE FUMARATE
  5. FLURAZEPAM HYDROCHLORIDE [Concomitant]
     Active Substance: FLURAZEPAM HYDROCHLORIDE
  6. GLYCOPYRRONIUM\INDACATEROL [Concomitant]
     Active Substance: GLYCOPYRRONIUM\INDACATEROL
  7. ZOLOFT [Concomitant]
     Active Substance: SERTRALINE HYDROCHLORIDE
  8. VENTOLIN [Concomitant]
     Active Substance: ALBUTEROL SULFATE
  9. LIVIAL [Concomitant]
     Active Substance: TIBOLONE
  10. PREDNISONE [Concomitant]
     Active Substance: PREDNISONE

REACTIONS (15)
  - Appendicitis [Unknown]
  - Acute coronary syndrome [Unknown]
  - Fall [Unknown]
  - Humerus fracture [Unknown]
  - Pneumonia [Unknown]
  - Emphysema [Unknown]
  - Bronchial wall thickening [Unknown]
  - Sinusitis [Unknown]
  - Condition aggravated [Unknown]
  - COVID-19 [Unknown]
  - Osteopenia [Unknown]
  - Drug intolerance [Unknown]
  - Bronchiectasis [Unknown]
  - Bronchitis chronic [Unknown]
  - Osteoporosis [Unknown]
